FAERS Safety Report 18207026 (Version 1)
Quarter: 2020Q3

REPORT INFORMATION
  Report Type: Spontaneous
  Country: JP (occurrence: JP)
  Receive Date: 20200828
  Receipt Date: 20200828
  Transmission Date: 20201103
  Serious: Yes (Hospitalization)
  Sender: FDA-Public Use
  Company Number: JP-JNJFOC-20200834923

PATIENT

DRUGS (1)
  1. DUROTEP [Suspect]
     Active Substance: FENTANYL
     Indication: CANCER PAIN
     Dosage: DOSE UNKNOWN
     Route: 062

REACTIONS (1)
  - Hospitalisation [Unknown]
